FAERS Safety Report 4643098-8 (Version None)
Quarter: 2005Q2

REPORT INFORMATION
  Report Type: 
  Country: None (occurrence: None)
  Receive Date: 20050421
  Receipt Date: 20050411
  Transmission Date: 20051028
  Serious: Yes (Hospitalization, Other)
  Sender: FDA-Public Use
  Company Number: USA-2003-0009614

PATIENT
  Age: 40 Year
  Sex: Female
  Weight: 56.7 kg

DRUGS (14)
  1. OXYCONTIN [Suspect]
     Dosage: 40 MG, Q5H
  2. CELEXA [Concomitant]
  3. ELMIRON (PENTOSAN POLYSULFAE SODIUM) [Concomitant]
  4. FLEXERIL [Concomitant]
  5. XANAX [Concomitant]
  6. WELLBUTRIN [Concomitant]
  7. KLONOPIN [Concomitant]
  8. DARVOCET-N (DEXTROPROPOXYPHENE NAPSILATE) [Concomitant]
  9. SEROQUEL [Concomitant]
  10. DOXEPIN HCL [Concomitant]
  11. PROZAC [Concomitant]
  12. LEVSIN HYOSCYAMINE SULFATE) [Concomitant]
  13. LUPRON (LEUPRORELIN SULFATE) [Concomitant]
  14. PERCOCET [Concomitant]

REACTIONS (46)
  - AGGRESSION [None]
  - AGITATION [None]
  - ANAEMIA [None]
  - ANXIETY [None]
  - BACK PAIN [None]
  - BLADDER PAIN [None]
  - CHILLS [None]
  - CONSTIPATION [None]
  - COUGH [None]
  - CRYING [None]
  - DEPRESSION [None]
  - DIARRHOEA [None]
  - DISSOCIATION [None]
  - DIZZINESS [None]
  - DRUG ABUSER [None]
  - DRUG DEPENDENCE [None]
  - DRUG TOLERANCE [None]
  - DRUG WITHDRAWAL CONVULSIONS [None]
  - DRUG WITHDRAWAL SYNDROME [None]
  - DYSPAREUNIA [None]
  - DYSPEPSIA [None]
  - DYSURIA [None]
  - EAR PRURITUS [None]
  - FATIGUE [None]
  - FEAR [None]
  - FEAR OF WEIGHT GAIN [None]
  - HEADACHE [None]
  - HYPERHIDROSIS [None]
  - INADEQUATE ANALGESIA [None]
  - INSOMNIA [None]
  - INTENTIONAL MISUSE [None]
  - IRRITABLE BOWEL SYNDROME [None]
  - MANIA [None]
  - MENTAL STATUS CHANGES [None]
  - MICTURITION URGENCY [None]
  - OTITIS MEDIA [None]
  - PAIN [None]
  - POLLAKIURIA [None]
  - PYREXIA [None]
  - REFUSAL OF TREATMENT BY PATIENT [None]
  - SKIN IRRITATION [None]
  - SUICIDAL IDEATION [None]
  - URINARY HESITATION [None]
  - VOMITING [None]
  - WEIGHT DECREASED [None]
  - WEIGHT INCREASED [None]
